FAERS Safety Report 4444537-8 (Version None)
Quarter: 2004Q3

REPORT INFORMATION
  Report Type: 
  Country: None (occurrence: None)
  Receive Date: 20040902
  Receipt Date: 20040823
  Transmission Date: 20050211
  Serious: Yes (Hospitalization)
  Sender: FDA-Public Use
  Company Number: TPA2004A00985

PATIENT
  Age: 73 Year
  Sex: Male
  Weight: 120.2032 kg

DRUGS (18)
  1. ACTOS [Suspect]
     Indication: DIABETES MELLITUS NON-INSULIN-DEPENDENT
     Dosage: 45 MG, 1 IN 1 D, PER ORAL; 30 MG, 1 IN 1 D, PER ORAL
     Route: 048
     Dates: start: 20000309, end: 20000606
  2. ACTOS [Suspect]
     Indication: DIABETES MELLITUS NON-INSULIN-DEPENDENT
     Dosage: 45 MG, 1 IN 1 D, PER ORAL; 30 MG, 1 IN 1 D, PER ORAL
     Route: 048
     Dates: start: 20000606, end: 20040601
  3. TOPROL XL (METOPROLOL SUCCINATE) (50 MILLIGRAM) [Concomitant]
  4. LIPITOR (ATORVASTATIN) (20 MILLIGRAM) [Concomitant]
  5. SYNTHROID (LEVOTHYROXINE SODIUM) (0.112 MILLIGRAM) [Concomitant]
  6. DETROL LA (TOLTERODINE) (4 MILLIGRAM) [Concomitant]
  7. GLUCOPHAGE (METFORMIN) (850 MILLIGRAM) [Concomitant]
  8. ZESTRIL (LISINOPRIL) (5 MILLIGRAM) [Concomitant]
  9. ASA (ACETYLSALICYLIC ACID) (81 MILLIGRAM) [Concomitant]
  10. BAYCOL (CERIVASTATIN SODIUM) (0.4 MILLIGRAM) [Concomitant]
  11. RHINOCORT (BUDESONIDE) (NASAL DROPS (INCLUDING NASAL SPRAY) [Concomitant]
  12. VANCENASE AQ (BECLOMETASONE DIPROPRIATE) (NASAL DROPS (INCLUDING NASAL [Concomitant]
  13. ATENOLOL [Concomitant]
  14. ATROVENT (IPRATROPIUM BROMIDE) (NASAL DROPS (INCLUDING NASAL SPRAY) [Concomitant]
  15. FUROSEMIDE (FUROSEMIDE) (40 MILLIGRAM) [Concomitant]
  16. K-DUR (POTASSIUM CHLORIDE) (20 MILLIGRAM) [Concomitant]
  17. VITAMINS (VITAMINS) [Concomitant]
  18. GARLIC (GARLIC) (TABLETS) [Concomitant]

REACTIONS (16)
  - ATRIOVENTRICULAR BLOCK SECOND DEGREE [None]
  - BUNDLE BRANCH BLOCK [None]
  - DIZZINESS [None]
  - DRUG INEFFECTIVE [None]
  - DYSPNOEA [None]
  - DYSPNOEA EXERTIONAL [None]
  - ELECTROCARDIOGRAM ST SEGMENT ELEVATION [None]
  - JOINT STIFFNESS [None]
  - MULTIPLE ALLERGIES [None]
  - OEDEMA PERIPHERAL [None]
  - RHINITIS [None]
  - RHINITIS ALLERGIC [None]
  - SINUS TACHYCARDIA [None]
  - TENSION HEADACHE [None]
  - VENTRICULAR DYSFUNCTION [None]
  - WEIGHT INCREASED [None]
